FAERS Safety Report 15186282 (Version 2)
Quarter: 2019Q1

REPORT INFORMATION
  Report Type: Report from Study
  Country: US (occurrence: US)
  Receive Date: 20180723
  Receipt Date: 20190130
  Transmission Date: 20190417
  Serious: No
  Sender: FDA-Public Use
  Company Number: US-EXELIXIS-CABO-17011729

PATIENT
  Sex: Male
  Weight: 111.11 kg

DRUGS (14)
  1. CLOBETASOL [Concomitant]
     Active Substance: CLOBETASOL
  2. VECTICAL [Concomitant]
     Active Substance: CALCITRIOL
  3. GABAPENTIN. [Concomitant]
     Active Substance: GABAPENTIN
  4. CABOMETYX [Suspect]
     Active Substance: CABOZANTINIB S-MALATE
     Indication: RENAL CELL CARCINOMA
     Dosage: 40 MG, QD
     Route: 048
     Dates: start: 201706
  5. FINASTERIDE. [Concomitant]
     Active Substance: FINASTERIDE
  6. METFORMIN HCL [Concomitant]
     Active Substance: METFORMIN HYDROCHLORIDE
  7. OXYCODONE AND ACETAMINOPHEN [Concomitant]
     Active Substance: ACETAMINOPHEN\OXYCODONE HYDROCHLORIDE
  8. VITAMIN B12 [Concomitant]
     Active Substance: CYANOCOBALAMIN
  9. TAMSULOSIN HCL [Concomitant]
     Active Substance: TAMSULOSIN HYDROCHLORIDE
  10. IBUPROFEN. [Concomitant]
     Active Substance: IBUPROFEN
  11. LOSARTAN POTASSIUM. [Concomitant]
     Active Substance: LOSARTAN POTASSIUM
  12. FOLIC ACID. [Concomitant]
     Active Substance: FOLIC ACID
  13. METHOTREXATE. [Concomitant]
     Active Substance: METHOTREXATE
  14. SIMVASTATIN. [Concomitant]
     Active Substance: SIMVASTATIN

REACTIONS (1)
  - Nasopharyngitis [Unknown]
